FAERS Safety Report 23383248 (Version 1)
Quarter: 2024Q1

REPORT INFORMATION
  Report Type: Spontaneous
  Country: None (occurrence: GB)
  Receive Date: 20240109
  Receipt Date: 20240109
  Transmission Date: 20240410
  Serious: Yes (Other)
  Sender: FDA-Public Use
  Company Number: GB-Ascend Therapeutics US, LLC-2150754

PATIENT
  Age: 48 Year
  Sex: Female
  Weight: 75.8 kg

DRUGS (3)
  1. ESTROGEL [Suspect]
     Active Substance: ESTRADIOL
     Indication: Product used for unknown indication
     Route: 061
     Dates: start: 20220330
  2. ESTRADIOL [Suspect]
     Active Substance: ESTRADIOL
     Route: 061
     Dates: start: 20220330
  3. ESTRADIOL [Suspect]
     Active Substance: ESTRADIOL
     Route: 061
     Dates: start: 202308, end: 20231017

REACTIONS (2)
  - Cervical polyp [Not Recovered/Not Resolved]
  - Vaginal haemorrhage [Not Recovered/Not Resolved]

NARRATIVE: CASE EVENT DATE: 20230821
